FAERS Safety Report 5565096-2 (Version None)
Quarter: 2007Q4

REPORT INFORMATION
  Report Type: 
  Country: None (occurrence: None)
  Receive Date: 20071212
  Receipt Date: 20071204
  Transmission Date: 20080405
  Serious: Yes (Other)
  Sender: FDA-Public Use
  Company Number: 163-21880-07120213

PATIENT
  Age: 53 Year
  Sex: Female

DRUGS (2)
  1. REVLIMID [Suspect]
     Indication: MULTIPLE MYELOMA
     Dosage: 10 MG, 1 IN 1 D,ORAL
     Route: 048
     Dates: start: 20071002, end: 20071016
  2. SENOKOT S (COLOXYL WITH SENNA) [Concomitant]

REACTIONS (6)
  - BONE PAIN [None]
  - BURNING SENSATION [None]
  - HEADACHE [None]
  - HYPOAESTHESIA [None]
  - MENTAL STATUS CHANGES [None]
  - PARAESTHESIA [None]
